FAERS Safety Report 7760818-4 (Version None)
Quarter: 2011Q3

REPORT INFORMATION
  Report Type: 
  Country: None (occurrence: None)
  Receive Date: 20110919
  Receipt Date: 20110609
  Transmission Date: 20111222
  Serious: No
  Sender: FDA-Public Use
  Company Number: US-MUTUAL PHARMACEUTICAL COMPANY, INC.-CLND20110001

PATIENT
  Sex: Male
  Weight: 90.8 kg

DRUGS (5)
  1. CLONIDINE [Suspect]
     Indication: HYPERTENSION
     Route: 048
     Dates: start: 20100901
  2. DILTIAZEM [Concomitant]
     Indication: HYPERTENSION
     Route: 048
  3. LISINOPRIL [Concomitant]
     Indication: HYPERTENSION
     Route: 048
  4. TERAZOSIN HCL [Concomitant]
     Indication: HYPERTENSION
     Route: 048
  5. NIACIN [Concomitant]
     Indication: PRODUCT USED FOR UNKNOWN INDICATION
     Route: 048

REACTIONS (3)
  - FATIGUE [None]
  - ILEUS [None]
  - CONSTIPATION [None]
